FAERS Safety Report 5981603-X (Version None)
Quarter: 2008Q4

REPORT INFORMATION
  Report Type: 
  Country: None (occurrence: None)
  Receive Date: 20081205
  Receipt Date: 20081202
  Transmission Date: 20090506
  Serious: Yes (Hospitalization)
  Sender: FDA-Public Use
  Company Number: MX-ABBOTT-08P-107-0490033-00

PATIENT
  Sex: Female
  Weight: 64 kg

DRUGS (6)
  1. HUMIRA [Suspect]
     Indication: DRUG USE FOR UNKNOWN INDICATION
     Route: 058
     Dates: start: 20081016, end: 20081115
  2. METHOTREXATE [Concomitant]
     Indication: RHEUMATOID ARTHRITIS
     Dates: start: 19900101, end: 20081120
  3. SULINDACO [Concomitant]
     Indication: RHEUMATOID ARTHRITIS
     Dosage: 200 MG DAILY
     Dates: start: 19900101, end: 20081120
  4. CHLOROQUINE PHOSPHATE [Concomitant]
     Indication: RHEUMATOID ARTHRITIS
     Dosage: 150 MG DAILY
     Dates: start: 19900101
  5. OMEPRAZOLE SODIUM [Concomitant]
     Indication: GASTRITIS
     Dates: start: 20060101
  6. CIPROFLOXACIN [Concomitant]
     Indication: ENTEROCOLITIS INFECTIOUS
     Dates: start: 20081120, end: 20081130

REACTIONS (4)
  - DIARRHOEA HAEMORRHAGIC [None]
  - INFLAMMATION [None]
  - LOWER GASTROINTESTINAL HAEMORRHAGE [None]
  - VOMITING [None]
